FAERS Safety Report 10174795 (Version 2)
Quarter: 2014Q2

REPORT INFORMATION
  Report Type: Spontaneous
  Country: US (occurrence: US)
  Receive Date: 20140515
  Receipt Date: 20140515
  Transmission Date: 20141212
  Serious: Yes (Hospitalization, Other)
  Sender: FDA-Public Use
  Company Number: US-TEVA-469945USA

PATIENT
  Age: 78 Year
  Sex: Female

DRUGS (10)
  1. GABAPENTIN [Suspect]
     Indication: NEURALGIA
     Dosage: 900MG DAILY
  2. GABAPENTIN [Suspect]
     Indication: OFF LABEL USE
     Dosage: 900MG DAILY
     Route: 065
  3. LISINOPRIL [Suspect]
  4. FUROSEMIDE [Suspect]
  5. SIMVASTATIN [Concomitant]
     Route: 065
  6. METFORMIN [Concomitant]
     Route: 065
  7. CITALOPRAM [Concomitant]
     Route: 065
  8. FLUTICASONE PROPIONATE [Concomitant]
     Route: 065
  9. SALBUTAMOL [Concomitant]
     Route: 065
  10. METOLAZONE [Concomitant]
     Route: 065

REACTIONS (3)
  - Myoclonus [Recovered/Resolved]
  - Toxicity to various agents [Recovered/Resolved]
  - Renal failure acute [Unknown]
